FAERS Safety Report 5028858-6 (Version None)
Quarter: 2006Q2

REPORT INFORMATION
  Report Type: 
  Country: None (occurrence: None)
  Receive Date: 20060619
  Receipt Date: 20060609
  Transmission Date: 20061013
  Serious: Yes (Other)
  Sender: FDA-Public Use
  Company Number: US-JNJFOC-20060602795

PATIENT
  Sex: Male
  Weight: 72.58 kg

DRUGS (8)
  1. DURAGESIC-100 [Suspect]
     Indication: DRUG USE FOR UNKNOWN INDICATION
     Route: 062
  2. FENTANYL TRANSDERMAL SYSTEM [Suspect]
     Indication: CANCER PAIN
     Route: 062
  3. PHENERGAN HCL [Concomitant]
     Indication: NAUSEA
     Route: 048
  4. XANAX [Concomitant]
     Indication: NERVOUSNESS
     Route: 048
  5. PREVACID [Concomitant]
     Indication: GASTROINTESTINAL DISORDER
     Route: 048
  6. CELEBREX [Concomitant]
     Indication: ARTHRITIS
     Route: 048
  7. ADVAIR DISKUS 100/50 [Concomitant]
     Route: 055
  8. ADVAIR DISKUS 100/50 [Concomitant]
     Indication: ASTHMA
     Dosage: INHALER, 2 PUFFS PER DAY BY INHALATION
     Route: 055

REACTIONS (8)
  - ABDOMINAL DISCOMFORT [None]
  - COLD SWEAT [None]
  - DRUG WITHDRAWAL SYNDROME [None]
  - HYPERHIDROSIS [None]
  - MEMORY IMPAIRMENT [None]
  - MUSCLE SPASMS [None]
  - RENAL CELL CARCINOMA STAGE UNSPECIFIED [None]
  - RENAL SURGERY [None]
